FAERS Safety Report 6431673-X (Version None)
Quarter: 2009Q4

REPORT INFORMATION
  Report Type: 
  Country: None (occurrence: None)
  Receive Date: 20091103
  Receipt Date: 20091026
  Transmission Date: 20100525
  Serious: Yes (Other)
  Sender: FDA-Public Use
  Company Number: 412775

PATIENT
  Sex: Female

DRUGS (2)
  1. METHOTEXATE [Suspect]
     Indication: RHEUMATOID ARTHRITIS
  2. ABATACEPT [Suspect]
     Indication: RHEUMATOID ARTHRITIS
     Dosage: 250 MG

REACTIONS (1)
  - BONE DISORDER [None]
